FAERS Safety Report 4468129-X (Version None)
Quarter: 2004Q4

REPORT INFORMATION
  Report Type: 
  Country: None (occurrence: None)
  Receive Date: 20041004
  Receipt Date: 20041004
  Transmission Date: 20050328
  Serious: Yes (Life-Threatening, Hospitalization)
  Sender: FDA-Public Use
  Company Number: None

PATIENT
  Age: 24 Year
  Sex: Female
  Weight: 66.6788 kg

DRUGS (5)
  1. VIOXX [Suspect]
     Indication: ARTHRITIS
     Dosage: ORAL
     Route: 048
     Dates: start: 20030110, end: 20040303
  2. VIOXX [Suspect]
     Indication: EXOSTOSIS
     Dosage: ORAL
     Route: 048
     Dates: start: 20030110, end: 20040303
  3. VIOXX [Suspect]
     Indication: INFLAMMATION
     Dosage: ORAL
     Route: 048
     Dates: start: 20030110, end: 20040303
  4. VIOXX [Suspect]
     Indication: JOINT EFFUSION
     Dosage: ORAL
     Route: 048
     Dates: start: 20030110, end: 20040303
  5. VIOXX [Suspect]

REACTIONS (4)
  - COLONIC POLYP [None]
  - IRRITABLE BOWEL SYNDROME [None]
  - MITRAL VALVE PROLAPSE [None]
  - PALPITATIONS [None]
